FAERS Safety Report 4426196-3 (Version None)
Quarter: 2004Q3

REPORT INFORMATION
  Report Type: 
  Country: None (occurrence: None)
  Receive Date: 20040811
  Receipt Date: 20040727
  Transmission Date: 20050211
  Serious: Yes (Other)
  Sender: FDA-Public Use
  Company Number: A0519996A

PATIENT
  Age: 25 Year
  Sex: Male

DRUGS (1)
  1. NICODERM CQ [Suspect]
     Indication: SMOKING CESSATION THERAPY
     Dosage: 21 MG / PER DAY / TRANSDERMAL
     Route: 062
     Dates: start: 19990101, end: 19990101

REACTIONS (3)
  - HALLUCINATION [None]
  - HYPERHIDROSIS [None]
  - TREMOR [None]
